FAERS Safety Report 11906858 (Version 1)
Quarter: 2016Q1

REPORT INFORMATION
  Report Type: Spontaneous
  Country: US (occurrence: US)
  Receive Date: 20160111
  Receipt Date: 20160111
  Transmission Date: 20160526
  Serious: Yes (Hospitalization)
  Sender: FDA-Public Use
  Company Number: US-MYLANLABS-2015M1047781

PATIENT

DRUGS (1)
  1. SOTALOL. [Suspect]
     Active Substance: SOTALOL
     Indication: CARDIAC DISORDER
     Dosage: 120 MG, BID
     Route: 048

REACTIONS (1)
  - Hospitalisation [Recovered/Resolved]
